FAERS Safety Report 7866605-0 (Version None)
Quarter: 2011Q4

REPORT INFORMATION
  Report Type: 
  Country: None (occurrence: None)
  Receive Date: 20111028
  Receipt Date: 20110713
  Transmission Date: 20120403
  Serious: No
  Sender: FDA-Public Use
  Company Number: US-GLAXOSMITHKLINE-A0936678A

PATIENT
  Sex: Female

DRUGS (8)
  1. SINGULAIR [Concomitant]
  2. DIOVAN [Concomitant]
  3. VENTOLIN HFA [Concomitant]
  4. VITAMIN B COMPLEX CAP [Concomitant]
  5. ADVAIR DISKUS 100/50 [Suspect]
     Indication: ASTHMA
     Route: 055
  6. ASPIRIN [Concomitant]
  7. LEXAPRO [Concomitant]
  8. PROVIGIL [Concomitant]

REACTIONS (1)
  - DRUG EFFECT DECREASED [None]
